FAERS Safety Report 14850162 (Version 1)
Quarter: 2018Q2

REPORT INFORMATION
  Report Type: Spontaneous
  Country: US (occurrence: US)
  Receive Date: 20180505
  Receipt Date: 20180505
  Transmission Date: 20180711
  Serious: No
  Sender: FDA-Public Use
  Company Number: US-ASTRAZENECA-2018SE58827

PATIENT
  Sex: Female
  Weight: 54.4 kg

DRUGS (1)
  1. BRILINTA [Suspect]
     Active Substance: TICAGRELOR
     Indication: STENT PLACEMENT
     Route: 048
     Dates: start: 20171201

REACTIONS (3)
  - Musculoskeletal pain [Unknown]
  - Rotator cuff syndrome [Unknown]
  - Sleep disorder [Unknown]
